FAERS Safety Report 12732192 (Version 1)
Quarter: 2016Q3

REPORT INFORMATION
  Report Type: Spontaneous
  Country: US (occurrence: US)
  Receive Date: 20160912
  Receipt Date: 20160912
  Transmission Date: 20161109
  Serious: No
  Sender: FDA-Public Use
  Company Number: None

PATIENT
  Age: 13 Year
  Sex: Female

DRUGS (6)
  1. PULMOZYME [Concomitant]
     Active Substance: DORNASE ALFA
  2. VENTOLIN [Concomitant]
     Active Substance: ALBUTEROL SULFATE
  3. ORKAMBI [Suspect]
     Active Substance: IVACAFTOR\LUMACAFTOR
     Indication: CYSTIC FIBROSIS
     Dosage: 400-250MG BID PO
     Route: 048
     Dates: start: 20150827
  4. CREON [Concomitant]
     Active Substance: PANCRELIPASE AMYLASE\PANCRELIPASE LIPASE\PANCRELIPASE PROTEASE
  5. AQUADEKS [Concomitant]
     Active Substance: MINERALS\VITAMINS
  6. VITAMIN D [Concomitant]
     Active Substance: CHOLECALCIFEROL

REACTIONS (3)
  - Drug dose omission [None]
  - Abdominal pain upper [None]
  - Decreased appetite [None]
